FAERS Safety Report 9905737 (Version 1)
Quarter: 2014Q1

REPORT INFORMATION
  Report Type: Not Available
  Country: FR (occurrence: FR)
  Receive Date: 20140218
  Receipt Date: 20140218
  Transmission Date: 20141002
  Serious: Yes (Hospitalization)
  Sender: FDA-Public Use
  Company Number: FR-NAPPMUNDI-GBR-2014-0017038

PATIENT
  Age: 74 Year
  Sex: Male

DRUGS (16)
  1. OXYNORM 10MG/ML SOLUTION INJECTABLE [Suspect]
     Indication: PAIN
     Dosage: 5 MG, BOLUS Q4H
     Route: 042
  2. OXYNORM 10MG/ML SOLUTION INJECTABLE [Suspect]
     Dosage: 2 MG/HR, UNK
     Route: 042
  3. OXYNORM 10MG/ML SOLUTION INJECTABLE [Suspect]
     Dosage: 2.8 MG, DAILY
     Route: 042
     Dates: start: 20131120
  4. OXYNORM 10MG/ML SOLUTION INJECTABLE [Suspect]
     Dosage: 10 MG, QID
     Route: 048
  5. OXYCONTIN LP 40 MG, COMPRIME PELLICULE A LIBERATION PROLONGEE [Suspect]
     Dosage: 40 MG, UNK
     Route: 048
  6. ENZALUTAMIDE [Suspect]
     Indication: PROSTATE CANCER METASTATIC
     Dosage: 1 UNK, UNK
     Route: 048
     Dates: start: 201308, end: 20131121
  7. KETAMINE [Suspect]
     Indication: PAIN
     Dosage: 0.5 MG, HS
  8. KETAMINE [Suspect]
     Dosage: 36 MG, DAILY
     Route: 042
     Dates: start: 20131115
  9. TAHOR [Concomitant]
     Indication: HYPERCHOLESTEROLAEMIA
     Dosage: 20 MG, DAILY
     Route: 048
  10. SOLUMEDROL [Concomitant]
     Dosage: 40 MG, BID
     Route: 048
  11. FLUDEX                             /00340101/ [Concomitant]
     Dosage: 1.5 MG, UNK
     Route: 048
  12. KARDEGIC [Concomitant]
     Dosage: 75 MG, UNK
     Route: 048
  13. BISOPROLOL HEMIFUMARATE [Concomitant]
     Dosage: 1.25 MG, UNK
     Route: 048
  14. PARACETAMOL [Concomitant]
     Dosage: 1 G, QID
     Route: 048
  15. INEXIUM                            /01479302/ [Concomitant]
     Dosage: 40 MG, UNK
     Route: 048
  16. MACROGOL [Concomitant]
     Indication: CONSTIPATION
     Route: 048

REACTIONS (5)
  - Abnormal behaviour [Recovered/Resolved]
  - Aggression [Recovered/Resolved]
  - Bone pain [Recovered/Resolved]
  - Confusional state [Recovered/Resolved]
  - Convulsion [Recovered/Resolved]
